FAERS Safety Report 20061524 (Version 3)
Quarter: 2022Q1

REPORT INFORMATION
  Report Type: Report from Study
  Country: US (occurrence: US)
  Receive Date: 20211112
  Receipt Date: 20220206
  Transmission Date: 20220424
  Serious: Yes (Death, Other)
  Sender: FDA-Public Use
  Company Number: US-NOVARTISPH-NVSC2021US258748

PATIENT
  Age: 57 Year
  Sex: Female

DRUGS (44)
  1. MEKINIST [Suspect]
     Active Substance: TRAMETINIB DIMETHYL SULFOXIDE
     Indication: Malignant melanoma
     Dosage: UNK
     Route: 048
     Dates: start: 20200116
  2. MEKINIST [Suspect]
     Active Substance: TRAMETINIB DIMETHYL SULFOXIDE
     Dosage: UNK
     Route: 065
     Dates: start: 20200117
  3. MEKINIST [Suspect]
     Active Substance: TRAMETINIB DIMETHYL SULFOXIDE
     Dosage: 1 DOSAGE FORM, QD(2 MG)
     Route: 048
     Dates: start: 20200820
  4. MEKINIST [Suspect]
     Active Substance: TRAMETINIB DIMETHYL SULFOXIDE
     Dosage: 1 DOSAGE FORM, QD(2 MG)
     Route: 048
     Dates: start: 20200825
  5. MEKINIST [Suspect]
     Active Substance: TRAMETINIB DIMETHYL SULFOXIDE
     Dosage: 1 DOSAGE FORM (2 MG)
     Route: 048
     Dates: start: 20200908
  6. MEKINIST [Suspect]
     Active Substance: TRAMETINIB DIMETHYL SULFOXIDE
     Dosage: 1 DOSAGE FORM, QD(2 MG)
     Route: 048
     Dates: start: 20210210
  7. MEKINIST [Suspect]
     Active Substance: TRAMETINIB DIMETHYL SULFOXIDE
     Dosage: 1 DOSAGE FORM, QD(2 MG)
     Route: 048
     Dates: start: 20210324, end: 20210811
  8. TAFINLAR [Suspect]
     Active Substance: DABRAFENIB MESYLATE
     Indication: Malignant melanoma
     Dosage: UNK
     Route: 048
     Dates: start: 20200116
  9. TAFINLAR [Suspect]
     Active Substance: DABRAFENIB MESYLATE
     Dosage: UNK
     Route: 065
     Dates: start: 20200117
  10. TAFINLAR [Suspect]
     Active Substance: DABRAFENIB MESYLATE
     Dosage: 2 DOSAGE FORM, BID (150 MG)
     Route: 048
     Dates: start: 20200820
  11. TAFINLAR [Suspect]
     Active Substance: DABRAFENIB MESYLATE
     Dosage: 2 DOSAGE FORM (150 MG)
     Route: 048
     Dates: start: 20200825
  12. TAFINLAR [Suspect]
     Active Substance: DABRAFENIB MESYLATE
     Dosage: 2 DOSAGE FORM (150 MG)
     Route: 048
     Dates: start: 20200908
  13. TAFINLAR [Suspect]
     Active Substance: DABRAFENIB MESYLATE
     Dosage: 2 DOSAGE FORM (150 MG)
     Route: 048
     Dates: start: 20210210, end: 20210803
  14. TAFINLAR [Suspect]
     Active Substance: DABRAFENIB MESYLATE
     Dosage: 2 DOSAGE FORM(150 MG)
     Route: 048
     Dates: start: 20210324, end: 20210811
  15. IPILIMUMAB [Concomitant]
     Active Substance: IPILIMUMAB
     Indication: Product used for unknown indication
     Dosage: UNK
     Route: 065
     Dates: start: 201708
  16. IPILIMUMAB [Concomitant]
     Active Substance: IPILIMUMAB
     Dosage: UNK
     Route: 065
     Dates: start: 20170817
  17. IPILIMUMAB [Concomitant]
     Active Substance: IPILIMUMAB
     Dosage: UNK
     Route: 065
     Dates: start: 20210218
  18. NIVOLUMAB [Concomitant]
     Active Substance: NIVOLUMAB
     Indication: Product used for unknown indication
     Dosage: UNK
     Route: 065
     Dates: start: 201709
  19. NIVOLUMAB [Concomitant]
     Active Substance: NIVOLUMAB
     Dosage: UNK
     Route: 065
     Dates: start: 20180927
  20. NIVOLUMAB [Concomitant]
     Active Substance: NIVOLUMAB
     Dosage: UNK
     Route: 065
     Dates: start: 20210218
  21. NIVOLUMAB [Concomitant]
     Active Substance: NIVOLUMAB
     Dosage: UNK
     Route: 065
     Dates: end: 20210708
  22. IOPAMIDOL [Concomitant]
     Active Substance: IOPAMIDOL
     Indication: Product used for unknown indication
     Dosage: UNK
     Route: 065
     Dates: start: 20201002, end: 20210805
  23. IOPAMIDOL [Concomitant]
     Active Substance: IOPAMIDOL
     Dosage: UNK
     Route: 065
     Dates: start: 20210708, end: 20210708
  24. IOPAMIDOL [Concomitant]
     Active Substance: IOPAMIDOL
     Dosage: UNK
     Route: 065
     Dates: start: 20210708, end: 20210709
  25. GADOTERATE MEGLUMINE [Concomitant]
     Active Substance: GADOTERATE MEGLUMINE
     Indication: Product used for unknown indication
     Dosage: UNK
     Route: 065
     Dates: start: 20201002, end: 20210805
  26. GADOTERATE MEGLUMINE [Concomitant]
     Active Substance: GADOTERATE MEGLUMINE
     Dosage: UNK
     Route: 065
     Dates: start: 20210708, end: 20210708
  27. GADOTERATE MEGLUMINE [Concomitant]
     Active Substance: GADOTERATE MEGLUMINE
     Dosage: UNK
     Route: 065
     Dates: start: 20210708, end: 20210709
  28. VITAMIN C [Concomitant]
     Active Substance: ASCORBIC ACID
     Indication: Product used for unknown indication
     Dosage: 500 MG, QD
     Route: 048
     Dates: end: 20210811
  29. DIATRIZOATE MEGLUMINE [Concomitant]
     Active Substance: DIATRIZOATE MEGLUMINE
     Indication: Product used for unknown indication
     Dosage: UNK
     Route: 065
     Dates: start: 20201002, end: 20210805
  30. DIATRIZOATE MEGLUMINE [Concomitant]
     Active Substance: DIATRIZOATE MEGLUMINE
     Dosage: UNK
     Route: 065
     Dates: start: 20210708, end: 20210709
  31. FLAXSEED [Concomitant]
     Active Substance: FLAX SEED
     Indication: Product used for unknown indication
     Dosage: 1000 MG, PRN
     Route: 048
     Dates: end: 20210811
  32. VITAMINS [Concomitant]
     Active Substance: VITAMINS
     Indication: Product used for unknown indication
     Dosage: 1 DOSAGE FORM, QD
     Route: 048
     Dates: end: 20210811
  33. ATIVAN [Concomitant]
     Active Substance: LORAZEPAM
     Indication: Product used for unknown indication
     Dosage: 1 DOSAGE FORM, Q4H, AS NEEDED UPTO 7 DAYS
     Route: 048
     Dates: start: 20210811, end: 20210818
  34. MELATONIN [Concomitant]
     Active Substance: MELATONIN
     Indication: Insomnia
     Dosage: 1 DOSAGE FORM, PRN, AT BEDTIME
     Route: 048
     Dates: start: 20210805, end: 20211103
  35. REGLAN [Concomitant]
     Active Substance: METOCLOPRAMIDE HYDROCHLORIDE
     Indication: Product used for unknown indication
     Dosage: 1 DOSAGE FORM, Q6H (AS NEEDED)
     Route: 048
     Dates: start: 20210805, end: 20211103
  36. REGLAN [Concomitant]
     Active Substance: METOCLOPRAMIDE HYDROCHLORIDE
     Dosage: 5 MG, Q6H (TAKING EVERY 12 HOURS, AS NEEDED)
     Route: 048
     Dates: start: 20210805, end: 20211103
  37. ROXANOL [Concomitant]
     Active Substance: MORPHINE SULFATE
     Indication: Pain
     Dosage: 0.25 ML, QH (AS NEEDED FOR UPTO 7 DAYS
     Route: 048
     Dates: start: 20210811, end: 20210818
  38. ROXANOL [Concomitant]
     Active Substance: MORPHINE SULFATE
     Indication: Dyspnoea
  39. ZYPREXA ZYDIS [Concomitant]
     Active Substance: OLANZAPINE
     Indication: Product used for unknown indication
     Dosage: 1 DOSAGE FORM, QD (AT BEDTIME)
     Route: 048
     Dates: start: 20210805, end: 20211103
  40. SENOKOT [Concomitant]
     Active Substance: SENNOSIDES
     Indication: Product used for unknown indication
     Dosage: 1 DOSAGE FORM, BID
     Route: 048
     Dates: start: 20210805, end: 20211103
  41. CIPRO [Concomitant]
     Active Substance: CIPROFLOXACIN HYDROCHLORIDE
     Indication: Product used for unknown indication
     Dosage: 1 DOSAGE FORM, Q12H (FOR 4 DAYS)
     Route: 048
     Dates: start: 20210805, end: 20210809
  42. DUPHALAC [Concomitant]
     Active Substance: LACTULOSE
     Indication: Product used for unknown indication
     Dosage: 30 ML, TID (SOLUTION)
     Route: 048
     Dates: start: 20210805, end: 20210811
  43. CONSTULOSE [Concomitant]
     Active Substance: LACTULOSE
     Indication: Product used for unknown indication
     Dosage: 30 ML, TID (SOLUTION)
     Route: 048
     Dates: start: 20210805, end: 20210811
  44. XARELTO [Concomitant]
     Active Substance: RIVAROXABAN
     Indication: Product used for unknown indication
     Dosage: UNK (TAKE 1 TABLET BY MOUTH TWICE DAILY WITH FOOD FOR 21 DAYS. THEN TAKE 1 TABLET (20 MG) BY MOUTH O
     Route: 048
     Dates: start: 20210806, end: 20210811

REACTIONS (37)
  - Metastases to central nervous system [Fatal]
  - Malignant melanoma [Fatal]
  - Abdominal distension [Fatal]
  - Lymphadenopathy [Fatal]
  - Ascites [Fatal]
  - Malignant neoplasm progression [Fatal]
  - Portal vein thrombosis [Unknown]
  - Metastases to liver [Unknown]
  - Cancer pain [Unknown]
  - Abdominal pain [Unknown]
  - Constipation [Unknown]
  - Dysarthria [Unknown]
  - Dehydration [Unknown]
  - Weight decreased [Unknown]
  - Tachycardia [Unknown]
  - White blood cell count increased [Unknown]
  - Protein total decreased [Unknown]
  - Blood albumin decreased [Unknown]
  - Blood glucose increased [Unknown]
  - Blood urea increased [Unknown]
  - Blood creatinine increased [Unknown]
  - Blood chloride decreased [Unknown]
  - Carbon dioxide abnormal [Unknown]
  - Anion gap increased [Unknown]
  - Ammonia increased [Unknown]
  - Dyspnoea exertional [Unknown]
  - Blood pressure abnormal [Unknown]
  - Transaminases increased [Unknown]
  - Blood lactic acid increased [Unknown]
  - Confusional state [Unknown]
  - Nausea [Unknown]
  - Fatigue [Unknown]
  - Asthenia [Unknown]
  - Vomiting [Unknown]
  - Pain [Unknown]
  - Cough [Unknown]
  - Diarrhoea [Unknown]

NARRATIVE: CASE EVENT DATE: 20210126
